FAERS Safety Report 13748216 (Version 2)
Quarter: 2017Q3

REPORT INFORMATION
  Report Type: Report from Study
  Country: IE (occurrence: IE)
  Receive Date: 20170713
  Receipt Date: 20170721
  Transmission Date: 20171127
  Serious: Yes (Other)
  Sender: FDA-Public Use
  Company Number: IE-AMGEN-IRLSL2017105347

PATIENT
  Age: 79 Year
  Sex: Female

DRUGS (10)
  1. VENTOLIN [Concomitant]
     Active Substance: ALBUTEROL SULFATE
     Dosage: 100 MUG, QID
     Route: 050
  2. ORAMORPH [Concomitant]
     Active Substance: MORPHINE SULFATE
     Dosage: 5 ML, PER CHEMO REGIM
     Route: 050
  3. PANTOPRAZOLE [Concomitant]
     Active Substance: PANTOPRAZOLE
     Dosage: 40 MG, PER CHEMO REGIM
     Route: 050
  4. DEXAMETHASONE. [Concomitant]
     Active Substance: DEXAMETHASONE
     Dosage: 8 MG, PER CHEMO REGIM
     Route: 050
  5. NEULASTA [Suspect]
     Active Substance: PEGFILGRASTIM
     Indication: PRODUCT USED FOR UNKNOWN INDICATION
     Dosage: 6 MG, Q3WK (POST CHEMOTHERAPY)
     Route: 058
     Dates: start: 20170616
  6. MYCOSTATIN [Concomitant]
     Active Substance: NYSTATIN
     Dosage: 1 ML, PER CHEMO REGIM
     Route: 050
  7. AMLODIPINE [Concomitant]
     Active Substance: AMLODIPINE BESYLATE
     Dosage: 5 MG, QD
     Route: 050
  8. VALOID [Concomitant]
     Active Substance: CYCLIZINE HYDROCHLORIDE
     Dosage: 50 MG, PER CHEMO REGIM
     Route: 050
  9. ULTIBRO [Concomitant]
     Active Substance: GLYCOPYRRONIUM\INDACATEROL
     Dosage: 85 MG, QD
     Route: 050
  10. CLOPIDOGREL [Concomitant]
     Active Substance: CLOPIDOGREL BISULFATE
     Dosage: 75 MG, QD
     Route: 050

REACTIONS (1)
  - Seizure like phenomena [Recovered/Resolved]

NARRATIVE: CASE EVENT DATE: 20170616
